FAERS Safety Report 9352725 (Version 1)
Quarter: 2013Q2

REPORT INFORMATION
  Report Type: Spontaneous
  Country: US (occurrence: None)
  Receive Date: 20130614
  Receipt Date: 20130614
  Transmission Date: 20140414
  Serious: Yes (Other)
  Sender: FDA-Public Use
  Company Number: None

PATIENT
  Age: 47 Year
  Sex: Male
  Weight: 110.2 kg

DRUGS (2)
  1. GAMUNEX-C [Suspect]
     Indication: MYASTHENIA GRAVIS
     Dosage: DAILY X5 DYAS
     Route: 042
     Dates: start: 20130603, end: 20130607
  2. GAMUNEX  C 20 GRAMS [Concomitant]

REACTIONS (3)
  - Fatigue [None]
  - Haemolytic anaemia [None]
  - Chromaturia [None]
